FAERS Safety Report 19420759 (Version 2)
Quarter: 2022Q3

REPORT INFORMATION
  Report Type: Spontaneous
  Country: JP (occurrence: JP)
  Receive Date: 20210616
  Receipt Date: 20220905
  Transmission Date: 20221027
  Serious: Yes (Disabling, Other)
  Sender: FDA-Public Use
  Company Number: JP-BAYER-2021-155862

PATIENT
  Age: 60 Year
  Sex: Male

DRUGS (2)
  1. EYLEA [Suspect]
     Active Substance: AFLIBERCEPT
     Indication: Diabetic retinal oedema
     Dosage: 2MG, ONCE, BOTH EYES, SOLUTION FOR INJECTION (STRENGTH: 40MG/ML)
     Route: 031
     Dates: start: 20200701, end: 20200701
  2. EYLEA [Suspect]
     Active Substance: AFLIBERCEPT
     Dosage: 2MG, ONCE, BOTH EYES, SOLUTION FOR INJECTION (STRENGTH: 40MG/ML)
     Route: 031
     Dates: start: 202102, end: 202102

REACTIONS (5)
  - Gangrene [Unknown]
  - Pain in extremity [Unknown]
  - Peripheral swelling [Unknown]
  - Pedal pulse abnormal [Unknown]
  - Peripheral artery occlusion [Unknown]

NARRATIVE: CASE EVENT DATE: 20210521
